FAERS Safety Report 5238934-0 (Version None)
Quarter: 2007Q1

REPORT INFORMATION
  Report Type: 
  Country: None (occurrence: None)
  Receive Date: 20070215
  Receipt Date: 20061228
  Transmission Date: 20070707
  Serious: Yes (Hospitalization, Disabling)
  Sender: FDA-Public Use
  Company Number: JP-MERCK-0205USA02283

PATIENT
  Age: 59 Year
  Sex: Female
  Weight: 58 kg

DRUGS (5)
  1. FOSAMAX [Suspect]
     Indication: OSTEOPOROSIS
     Route: 048
     Dates: start: 20011116, end: 20020428
  2. PREDNISOLONE [Concomitant]
     Indication: SYSTEMIC SCLEROSIS
     Route: 065
     Dates: start: 20020401
  3. TEPRENONE [Concomitant]
     Indication: GASTRITIS
     Route: 065
  4. CALCITRIOL [Concomitant]
     Indication: SYSTEMIC SCLEROSIS
     Route: 048
     Dates: start: 20010227
  5. GASTER D [Suspect]
     Indication: GASTRITIS
     Route: 048
     Dates: start: 20010405, end: 20020208

REACTIONS (13)
  - ABDOMINAL DISTENSION [None]
  - ABDOMINAL PAIN UPPER [None]
  - ASCITES [None]
  - BLOOD BILIRUBIN INCREASED [None]
  - BLOOD BILIRUBIN UNCONJUGATED INCREASED [None]
  - DRUG EFFECT DECREASED [None]
  - EPISTAXIS [None]
  - HAEMOLYTIC URAEMIC SYNDROME [None]
  - HEPATIC VEIN STENOSIS [None]
  - PORTAL HYPERTENSION [None]
  - THROMBOCYTOPENIA [None]
  - THYROIDITIS CHRONIC [None]
  - VENOOCCLUSIVE LIVER DISEASE [None]
